FAERS Safety Report 15396109 (Version 1)
Quarter: 2018Q3

REPORT INFORMATION
  Report Type: Spontaneous
  Country: US (occurrence: US)
  Receive Date: 20180912
  Receipt Date: 20180912
  Transmission Date: 20181010
  Serious: Yes (Other)
  Sender: FDA-Public Use
  Company Number: None

PATIENT
  Age: 75 Year
  Sex: Female
  Weight: 67.05 kg

DRUGS (9)
  1. RHOPRESSA [Suspect]
     Active Substance: NETARSUDIL MESYLATE
     Indication: GLAUCOMA
     Dosage: ?          QUANTITY:1 DROP(S);?
     Route: 047
     Dates: start: 20180721, end: 20180721
  2. OSTEO?K, ALLERCLEAR (LORATADINE 10MG) [Concomitant]
  3. LISINOPRIL. [Concomitant]
     Active Substance: LISINOPRIL
  4. BENADRYL [Concomitant]
     Active Substance: DIPHENHYDRAMINE HYDROCHLORIDE
  5. DORZOLAMIDE HCI?TIMOLOL MALEATE OPHTHALMIC SOLUTION 22.3 MG/6.8 MG PER [Concomitant]
  6. BLOOD PRESSURE MONITOR [Concomitant]
  7. NORWEGIAN KELP [Concomitant]
  8. MAGNESIUM 500MG [Concomitant]
  9. LATANOPROST OPHTHALMIC SOLUTION 0.005% [Concomitant]
     Active Substance: LATANOPROST

REACTIONS (2)
  - Eye inflammation [None]
  - Therapy cessation [None]

NARRATIVE: CASE EVENT DATE: 20180721
